FAERS Safety Report 9095984 (Version 1)
Quarter: 2013Q1

REPORT INFORMATION
  Report Type: Spontaneous
  Country: FR (occurrence: FR)
  Receive Date: 20130207
  Receipt Date: 20130207
  Transmission Date: 20140127
  Serious: Yes (Other)
  Sender: FDA-Public Use
  Company Number: FR-JNJFOC-20130200277

PATIENT
  Age: 52 Year
  Sex: Male

DRUGS (9)
  1. REMICADE [Suspect]
     Indication: RHEUMATOID ARTHRITIS
     Route: 042
  2. REMICADE [Suspect]
     Indication: RHEUMATOID ARTHRITIS
     Route: 042
     Dates: start: 20121205
  3. ARAVA [Concomitant]
     Route: 065
  4. CORTANCYL [Concomitant]
     Route: 065
  5. OMEPRAZOLE [Concomitant]
     Route: 065
  6. IXPRIM [Concomitant]
     Route: 065
  7. CACIT D3 [Concomitant]
     Dosage: 1 DF
     Route: 065
  8. ACTONEL [Concomitant]
     Route: 065
  9. UVEDOSE [Concomitant]
     Dosage: 1 AMPOULE
     Route: 065

REACTIONS (4)
  - Infusion related reaction [Recovered/Resolved]
  - Malaise [Recovered/Resolved]
  - Erythema [Recovered/Resolved]
  - Abdominal pain [Recovered/Resolved]
